FAERS Safety Report 15072922 (Version 4)
Quarter: 2018Q3

REPORT INFORMATION
  Report Type: Spontaneous
  Country: US (occurrence: US)
  Receive Date: 20180627
  Receipt Date: 20180903
  Transmission Date: 20181010
  Serious: Yes (Hospitalization, Other)
  Sender: FDA-Public Use
  Company Number: US-CONCORDIA PHARMACEUTICALS INC.-GSH201806-002173

PATIENT
  Age: 29 Year
  Sex: Female

DRUGS (2)
  1. HYDROXYCHLOROQUINE [Suspect]
     Active Substance: HYDROXYCHLOROQUINE
     Indication: SUBACUTE CUTANEOUS LUPUS ERYTHEMATOSUS
     Dates: start: 20180711, end: 20180713
  2. HYDROXYCHLOROQUINE [Suspect]
     Active Substance: HYDROXYCHLOROQUINE
     Indication: PORPHYRIA NON-ACUTE

REACTIONS (9)
  - Nausea [Recovering/Resolving]
  - Malaise [Recovering/Resolving]
  - Alanine aminotransferase increased [Recovering/Resolving]
  - Hepatic cirrhosis [Recovering/Resolving]
  - Chills [Recovering/Resolving]
  - Aspartate aminotransferase increased [Recovering/Resolving]
  - Drug-induced liver injury [Recovering/Resolving]
  - Chromaturia [Recovering/Resolving]
  - Fatigue [Recovering/Resolving]
